FAERS Safety Report 5166263-2 (Version None)
Quarter: 2006Q4

REPORT INFORMATION
  Report Type: 
  Country: None (occurrence: None)
  Receive Date: 20060830
  Receipt Date: 20060520
  Transmission Date: 20070319
  Serious: No
  Sender: FDA-Public Use
  Company Number: 222806

PATIENT
  Sex: Female

DRUGS (1)
  1. XOLAIR [Suspect]
     Indication: DRUG USE FOR UNKNOWN INDICATION
     Dosage: 375 DMG Q2W

REACTIONS (2)
  - HEADACHE [None]
  - RETCHING [None]
